FAERS Safety Report 19890500 (Version 1)
Quarter: 2021Q3

REPORT INFORMATION
  Report Type: Spontaneous
  Country: US (occurrence: US)
  Receive Date: 20210928
  Receipt Date: 20210928
  Transmission Date: 20211014
  Serious: No
  Sender: FDA-Public Use
  Company Number: US-PFIZER INC-2021788261

PATIENT
  Age: 74 Year
  Sex: Female
  Weight: 64.86 kg

DRUGS (1)
  1. PREMARIN [Suspect]
     Active Substance: ESTROGENS, CONJUGATED
     Indication: OVARIAN DISORDER
     Dosage: 1.25 MG, 1X/DAY
     Route: 048
     Dates: start: 1976

REACTIONS (8)
  - Hot flush [Unknown]
  - Hyperhidrosis [Unknown]
  - Chest discomfort [Unknown]
  - Anxiety [Unknown]
  - Mental disorder [Unknown]
  - Dyspnoea [Unknown]
  - Heart rate irregular [Unknown]
  - Thinking abnormal [Unknown]
